FAERS Safety Report 21004094 (Version 2)
Quarter: 2022Q3

REPORT INFORMATION
  Report Type: Spontaneous
  Country: US (occurrence: US)
  Receive Date: 20220624
  Receipt Date: 20220928
  Transmission Date: 20221027
  Serious: No
  Sender: FDA-Public Use
  Company Number: US-AVEO ONCOLOGY-2022-AVEO-US000186

PATIENT

DRUGS (1)
  1. FOTIVDA [Suspect]
     Active Substance: TIVOZANIB HYDROCHLORIDE
     Indication: Renal cell carcinoma
     Dosage: 1.34 MG, BY MOUTH DAILY X 21 DAYS ON, THEN 7 DAYS OFF
     Route: 048
     Dates: start: 20211118

REACTIONS (2)
  - Ill-defined disorder [Unknown]
  - Nodule [Unknown]
